FAERS Safety Report 9925992 (Version 1)
Quarter: 2014Q1

REPORT INFORMATION
  Report Type: Spontaneous
  Country: DE (occurrence: DE)
  Receive Date: 20140226
  Receipt Date: 20140226
  Transmission Date: 20141002
  Serious: Yes (Other)
  Sender: FDA-Public Use
  Company Number: DE-ABBVIE-14P-062-1204436-00

PATIENT
  Sex: 0

DRUGS (2)
  1. HUMIRA [Suspect]
     Indication: CROHN^S DISEASE
     Dosage: WEEK 0
     Route: 058
     Dates: start: 201402
  2. HUMIRA [Suspect]
     Dosage: WEEK 2
     Route: 058

REACTIONS (2)
  - Epilepsy [Unknown]
  - Intracranial venous sinus thrombosis [Unknown]
